FAERS Safety Report 21690820 (Version 1)
Quarter: 2022Q4

REPORT INFORMATION
  Report Type: Spontaneous
  Country: US (occurrence: None)
  Receive Date: 20221207
  Receipt Date: 20221207
  Transmission Date: 20230113
  Serious: No
  Sender: FDA-Public Use
  Company Number: 2022A396059

PATIENT
  Age: 53 Year
  Sex: Female
  Weight: 81.6 kg

DRUGS (2)
  1. BRILINTA [Suspect]
     Active Substance: TICAGRELOR
     Indication: Blood test abnormal
     Route: 048
     Dates: start: 202208
  2. NEXIUM 24HR [Suspect]
     Active Substance: ESOMEPRAZOLE MAGNESIUM
     Indication: Dyspepsia
     Route: 048

REACTIONS (4)
  - Dyspepsia [Recovered/Resolved]
  - Epistaxis [Recovered/Resolved]
  - Gingival bleeding [Recovered/Resolved]
  - Intentional product use issue [Unknown]

NARRATIVE: CASE EVENT DATE: 20220801
